FAERS Safety Report 11987004 (Version 1)
Quarter: 2016Q1

REPORT INFORMATION
  Report Type: Spontaneous
  Country: US (occurrence: None)
  Receive Date: 20160201
  Receipt Date: 20160201
  Transmission Date: 20160526
  Serious: Yes (Hospitalization)
  Sender: FDA-Public Use
  Company Number: None

PATIENT
  Age: 15 Year
  Sex: Male
  Weight: 90.72 kg

DRUGS (1)
  1. FLUOXETINE [Suspect]
     Active Substance: FLUOXETINE HYDROCHLORIDE
     Indication: DEPRESSION
     Dosage: ONE PILL, ONCE DAILY, TAKEN BY MOUTH
     Route: 048
     Dates: start: 20151218, end: 20160112

REACTIONS (8)
  - Viral infection [None]
  - Anhedonia [None]
  - Arthralgia [None]
  - Hand deformity [None]
  - Intentional self-injury [None]
  - Screaming [None]
  - Aggression [None]
  - Lethargy [None]

NARRATIVE: CASE EVENT DATE: 20160111
